FAERS Safety Report 8077176-0 (Version None)
Quarter: 2012Q1

REPORT INFORMATION
  Report Type: 
  Country: None (occurrence: None)
  Receive Date: 20120127
  Receipt Date: 20120126
  Transmission Date: 20120608
  Serious: No
  Sender: FDA-Public Use
  Company Number: US-TEVA-319007USA

PATIENT
  Sex: Female
  Weight: 69.916 kg

DRUGS (3)
  1. ALBUTEROL [Concomitant]
     Indication: ASTHMA
  2. FLOVENT [Concomitant]
     Indication: ASTHMA
  3. PLAN B ONE-STEP [Suspect]
     Indication: POST COITAL CONTRACEPTION
     Dosage: 1.5 MILLIGRAM;
     Route: 048
     Dates: start: 20120118, end: 20120118

REACTIONS (1)
  - MENSTRUATION IRREGULAR [None]
